FAERS Safety Report 7374557-5 (Version None)
Quarter: 2011Q1

REPORT INFORMATION
  Report Type: 
  Country: None (occurrence: None)
  Receive Date: 20110325
  Receipt Date: 20100910
  Transmission Date: 20110831
  Serious: No
  Sender: FDA-Public Use
  Company Number: US-MYLANLABS-2010S1004571

PATIENT
  Age: 63 Year
  Sex: Female

DRUGS (13)
  1. FENTANYL-100 [Suspect]
     Dosage: Q3D
     Route: 062
     Dates: start: 20090601, end: 20100315
  2. FENTANYL-100 [Suspect]
     Indication: SPINAL COLUMN STENOSIS
     Dosage: Q3D
     Route: 062
     Dates: start: 20090601, end: 20100315
  3. FLEXOR /00018303/ [Concomitant]
     Route: 062
  4. FENTANYL-100 [Suspect]
     Indication: PAIN
     Dosage: Q3D
     Route: 062
     Dates: start: 20090601, end: 20100315
  5. FENTANYL-100 [Suspect]
     Dosage: Q3D
     Route: 062
     Dates: start: 20090601, end: 20100315
  6. FENTANYL-100 [Suspect]
     Dosage: Q3D
     Route: 062
     Dates: start: 20090601, end: 20100315
  7. FENTANYL-100 [Suspect]
     Dosage: Q3D
     Route: 062
     Dates: start: 20090601, end: 20100315
  8. FENTANYL-100 [Suspect]
     Indication: INTERVERTEBRAL DISC PROTRUSION
     Dosage: Q3D
     Route: 062
     Dates: start: 20090601, end: 20100315
  9. FENTANYL-100 [Suspect]
     Dosage: Q3D
     Route: 062
     Dates: start: 20090601, end: 20100315
  10. FLEXERIL [Concomitant]
  11. XANAX [Concomitant]
  12. FENTANYL-100 [Suspect]
     Indication: SCIATICA
     Dosage: Q3D
     Route: 062
     Dates: start: 20090601, end: 20100315
  13. FENTANYL-100 [Suspect]
     Dosage: Q3D
     Route: 062
     Dates: start: 20090601, end: 20100315

REACTIONS (8)
  - PARAESTHESIA [None]
  - RESTLESSNESS [None]
  - PHOTOPHOBIA [None]
  - DRUG INEFFECTIVE [None]
  - PAIN [None]
  - WITHDRAWAL SYNDROME [None]
  - INSOMNIA [None]
  - NAUSEA [None]
